FAERS Safety Report 10227207 (Version 1)
Quarter: 2014Q2

REPORT INFORMATION
  Report Type: Spontaneous
  Country: US (occurrence: None)
  Receive Date: 20140609
  Receipt Date: 20140609
  Transmission Date: 20141212
  Serious: Yes (Hospitalization)
  Sender: FDA-Public Use
  Company Number: None

PATIENT
  Age: 75 Year
  Sex: Male
  Weight: 68.4 kg

DRUGS (3)
  1. CARBOPLATIN [Suspect]
  2. CETUXIMAB [Suspect]
  3. PACLITAXEL (TAXOL) [Suspect]

REACTIONS (5)
  - Haemoptysis [None]
  - Oral candidiasis [None]
  - Bronchial haemorrhage [None]
  - Respiratory disorder [None]
  - Chronic obstructive pulmonary disease [None]
